FAERS Safety Report 19773943 (Version 1)
Quarter: 2021Q3

REPORT INFORMATION
  Report Type: Spontaneous
  Country: GB (occurrence: GB)
  Receive Date: 20210831
  Receipt Date: 20210831
  Transmission Date: 20211014
  Serious: Yes (Other)
  Sender: FDA-Public Use
  Company Number: GB-CANTON LABORATORIES, LLC-2117881

PATIENT
  Age: 38 Year
  Sex: Female

DRUGS (2)
  1. NAPROSYN [Suspect]
     Active Substance: NAPROXEN
     Indication: BACK PAIN
     Route: 048
     Dates: start: 20210814, end: 20210816
  2. METFORMIN [Concomitant]
     Active Substance: METFORMIN HYDROCHLORIDE

REACTIONS (3)
  - Dyspepsia [Not Recovered/Not Resolved]
  - Heart rate decreased [Recovered/Resolved]
  - Dizziness [Recovered/Resolved]

NARRATIVE: CASE EVENT DATE: 20210815
